FAERS Safety Report 9363892 (Version 1)
Quarter: 2013Q2

REPORT INFORMATION
  Report Type: Spontaneous
  Country: GB (occurrence: GB)
  Receive Date: 20130624
  Receipt Date: 20130624
  Transmission Date: 20140414
  Serious: Yes (Other)
  Sender: FDA-Public Use
  Company Number: GB-009507513-1306GBR010261

PATIENT
  Age: 21 Year
  Sex: Female

DRUGS (5)
  1. COSOPT 20 MG/ML + 5 MG/ML, EYE DROPS, SOLUTION [Suspect]
     Indication: GLAUCOMA
     Dosage: UNK UNK, TID
     Dates: start: 2012
  2. PILOCARPINE [Suspect]
     Indication: GLAUCOMA
     Dosage: 4 %, TID
     Dates: start: 2012
  3. IOPIDINE [Concomitant]
     Dosage: 0.5 %, TID
     Dates: start: 2012
  4. BIMATOPROST [Concomitant]
     Dosage: 0.03 %, HS
     Dates: start: 2012
  5. DIAMOX [Concomitant]
     Dosage: 250 MG, SUSTAINED RELEASE, BID

REACTIONS (2)
  - Glaucoma surgery [Unknown]
  - Visual acuity reduced [Recovering/Resolving]
